FAERS Safety Report 5179643-6 (Version None)
Quarter: 2006Q4

REPORT INFORMATION
  Report Type: 
  Country: None (occurrence: None)
  Receive Date: 20061212
  Receipt Date: 20061129
  Transmission Date: 20070319
  Serious: Yes (Hospitalization)
  Sender: FDA-Public Use
  Company Number: 06DE000844

PATIENT
  Age: 22 Year
  Sex: Female

DRUGS (3)
  1. LITHIUM CARBONATE [Suspect]
     Indication: GENERALISED ANXIETY DISORDER
     Dosage: 900 MG
  2. PAROXETINE [Suspect]
     Indication: GENERALISED ANXIETY DISORDER
     Dosage: 40 MG
  3. OLANZAPINE [Concomitant]

REACTIONS (8)
  - ANXIETY [None]
  - DRUG INTERACTION [None]
  - DRUG LEVEL DECREASED [None]
  - DYSTONIA [None]
  - EXTRAPYRAMIDAL DISORDER [None]
  - GAZE PALSY [None]
  - NEUROTOXICITY [None]
  - OCULOGYRATION [None]
